FAERS Safety Report 24403464 (Version 1)
Quarter: 2024Q4

REPORT INFORMATION
  Report Type: Spontaneous
  Country: US (occurrence: US)
  Receive Date: 20241007
  Receipt Date: 20241007
  Transmission Date: 20250115
  Serious: No
  Sender: RANBAXY
  Company Number: US-SUN PHARMACEUTICAL INDUSTRIES LTD-2024R1-449664

PATIENT
  Sex: Female

DRUGS (1)
  1. CEQUA [Suspect]
     Active Substance: CYCLOSPORINE
     Indication: Dry eye
     Dosage: UNK UNK, QD
     Route: 047
     Dates: start: 20240506

REACTIONS (4)
  - Eye irritation [Unknown]
  - Intentional underdose [Unknown]
  - Therapy cessation [Unknown]
  - Off label use [Unknown]
